FAERS Safety Report 4705352-0 (Version None)
Quarter: 2005Q3

REPORT INFORMATION
  Report Type: 
  Country: None (occurrence: None)
  Receive Date: 20050701
  Receipt Date: 20050624
  Transmission Date: 20060218
  Serious: Yes (Death)
  Sender: FDA-Public Use
  Company Number: JP-JNJFOC-20050601532

PATIENT
  Sex: Male

DRUGS (5)
  1. RISPERDAL [Suspect]
     Route: 049
  2. RISPERDAL [Suspect]
     Dosage: REDUCED TO 1 MG.
     Route: 049
  3. CHLORPROMAZINE HIBENZATE [Suspect]
     Indication: MANIA
  4. LITHIUM CARBONATE [Concomitant]
     Indication: MANIA
     Route: 049
  5. FLUNITRAZEPAM [Concomitant]
     Indication: MANIA

REACTIONS (4)
  - DELIRIUM [None]
  - EXTRAPYRAMIDAL DISORDER [None]
  - MYOCARDIAL INFARCTION [None]
  - PNEUMONIA [None]
